FAERS Safety Report 13545232 (Version 1)
Quarter: 2017Q2

REPORT INFORMATION
  Report Type: Spontaneous
  Country: US (occurrence: US)
  Receive Date: 20170513
  Receipt Date: 20170513
  Transmission Date: 20170830
  Serious: Yes (Disabling)
  Sender: FDA-Public Use
  Company Number: None

PATIENT
  Age: 63 Year
  Sex: Female
  Weight: 69.75 kg

DRUGS (2)
  1. PAROXETINE 10 MG AUROBINDO AUROLIFE [Suspect]
     Active Substance: PAROXETINE HYDROCHLORIDE
     Indication: ANXIETY
     Dosage: ?          QUANTITY:30 TABLET(S);?
     Route: 048
     Dates: start: 19930606, end: 20170512
  2. PAROXETINE 10 MG AUROBINDO AUROLIFE [Suspect]
     Active Substance: PAROXETINE HYDROCHLORIDE
     Indication: DEPRESSION
     Dosage: ?          QUANTITY:30 TABLET(S);?
     Route: 048
     Dates: start: 19930606, end: 20170512

REACTIONS (12)
  - Amnesia [None]
  - Withdrawal syndrome [None]
  - Mobility decreased [None]
  - Paraesthesia [None]
  - Abdominal pain [None]
  - Influenza like illness [None]
  - Muscle spasms [None]
  - Asthenia [None]
  - Crying [None]
  - Confusional state [None]
  - Hyperhidrosis [None]
  - Hot flush [None]

NARRATIVE: CASE EVENT DATE: 20170101
